FAERS Safety Report 5546749-9 (Version None)
Quarter: 2007Q4

REPORT INFORMATION
  Report Type: 
  Country: None (occurrence: None)
  Receive Date: 20071207
  Receipt Date: 20071207
  Transmission Date: 20080405
  Serious: Yes (Hospitalization)
  Sender: FDA-Public Use
  Company Number: None

PATIENT
  Sex: Female
  Weight: 82.1 kg

DRUGS (2)
  1. FLUOROURACIL [Suspect]
     Dosage: 8000 MG
  2. MITOMYCIN-C [Suspect]
     Dosage: 20 MG

REACTIONS (1)
  - PLATELET COUNT ABNORMAL [None]
